FAERS Safety Report 13056904 (Version 1)
Quarter: 2016Q4

REPORT INFORMATION
  Report Type: Spontaneous
  Country: US (occurrence: US)
  Receive Date: 20161222
  Receipt Date: 20161222
  Transmission Date: 20170207
  Serious: No
  Sender: FDA-Public Use
  Company Number: US-BIOMARINAP-US-2016-111316

PATIENT
  Sex: Female
  Weight: 58.6 kg

DRUGS (1)
  1. KUVAN [Suspect]
     Active Substance: SAPROPTERIN DIHYDROCHLORIDE
     Indication: PHENYLKETONURIA
     Dosage: 1200 MG, QD
     Route: 048
     Dates: start: 20130626

REACTIONS (3)
  - Pain [Recovering/Resolving]
  - Nausea [Recovering/Resolving]
  - Impaired gastric emptying [Recovering/Resolving]
